FAERS Safety Report 16643311 (Version 1)
Quarter: 2019Q3

REPORT INFORMATION
  Report Type: Spontaneous
  Country: US (occurrence: US)
  Receive Date: 20190729
  Receipt Date: 20190729
  Transmission Date: 20191004
  Serious: No
  Sender: FDA-Public Use
  Company Number: US-JNJFOC-20190722572

PATIENT
  Sex: Male
  Weight: 145.28 kg

DRUGS (1)
  1. RISPERDAL [Suspect]
     Active Substance: RISPERIDONE
     Indication: ANXIETY
     Route: 065

REACTIONS (6)
  - Change of bowel habit [Unknown]
  - Product use in unapproved indication [Unknown]
  - Feeling abnormal [Unknown]
  - Weight increased [Unknown]
  - Gynaecomastia [Unknown]
  - Off label use [Unknown]
